FAERS Safety Report 8844386 (Version 2)
Quarter: 2012Q4

REPORT INFORMATION
  Report Type: 
  Country: CA (occurrence: CA)
  Receive Date: 20121017
  Receipt Date: 20121127
  Transmission Date: 20130627
  Serious: Yes (Death, Hospitalization)
  Sender: FDA-Public Use
  Company Number: PHHY2012CA091808

PATIENT
  Age: 64 Year
  Sex: Female

DRUGS (1)
  1. ACLASTA [Suspect]
     Indication: OSTEOPOROSIS
     Dosage: UNK UKN, UNK
     Route: 042
     Dates: start: 20121010

REACTIONS (6)
  - Pneumonia [Fatal]
  - Arrhythmia [Unknown]
  - Ventricular tachycardia [Unknown]
  - Palpitations [Unknown]
  - Pyrexia [Unknown]
  - Chills [Unknown]
